FAERS Safety Report 4567344-4 (Version None)
Quarter: 2005Q1

REPORT INFORMATION
  Report Type: 
  Country: None (occurrence: None)
  Receive Date: 20050127
  Receipt Date: 20050117
  Transmission Date: 20050727
  Serious: Yes (Death)
  Sender: FDA-Public Use
  Company Number: 2005014153

PATIENT
  Sex: Female

DRUGS (1)
  1. UNISOM [Suspect]
     Dosage: ORAL
     Route: 048

REACTIONS (1)
  - DEMENTIA ALZHEIMER'S TYPE [None]
